FAERS Safety Report 16871627 (Version 1)
Quarter: 2019Q4

REPORT INFORMATION
  Report Type: Spontaneous
  Country: DE (occurrence: DE)
  Receive Date: 20191001
  Receipt Date: 20191001
  Transmission Date: 20200122
  Serious: Yes (Other)
  Sender: FDA-Public Use
  Company Number: DE-ROCHE-2425481

PATIENT
  Sex: Female
  Weight: 58.1 kg

DRUGS (5)
  1. MABTHERA [Suspect]
     Active Substance: RITUXIMAB
     Indication: DIFFUSE LARGE B-CELL LYMPHOMA
     Dosage: 1ST LINE THERAPY ACCORDING TO R-MINI-CHOP AND 2 CYCLES RITUXIMAB AS MONOTHERAPY
     Route: 065
     Dates: start: 201808, end: 201901
  2. OXALIPLATIN. [Suspect]
     Active Substance: OXALIPLATIN
     Indication: DIFFUSE LARGE B-CELL LYMPHOMA
     Dosage: 2ND LINE THERAPY ACCORDING TO RITUXIMAB/GEMCITABINE /OXALIPLATIN REGIMEN, 6 CYCLES
     Route: 065
     Dates: start: 201903, end: 201906
  3. GEMCITABINE. [Suspect]
     Active Substance: GEMCITABINE
     Indication: DIFFUSE LARGE B-CELL LYMPHOMA
     Dosage: 2ND LINE THERAPY ACCORDING TO RITUXIMAB/GEMCITABINE /OXALIPLATIN REGIMEN, 6 CYCLES
     Route: 065
     Dates: start: 201903, end: 201906
  4. MABTHERA [Suspect]
     Active Substance: RITUXIMAB
     Dosage: 2ND LINE THERAPY ACCORDING TO RITUXIMAB/GEMCITABINE/OXALIPLATIN REGIMEN, 6 CYCLES
     Route: 065
     Dates: start: 201903, end: 201906
  5. CHOP [Suspect]
     Active Substance: CYCLOPHOSPHAMIDE\DOXORUBICIN\PREDNISONE\VINCRISTINE
     Indication: DIFFUSE LARGE B-CELL LYMPHOMA
     Dosage: 1ST LINE THERAPY ACCORDING TO R-MINI-CHOP AND 2 CYCLES RITUXIMAB AS MONOTHERAPY
     Route: 065
     Dates: start: 201808, end: 201901

REACTIONS (2)
  - Neuropathy peripheral [Unknown]
  - Malignant neoplasm progression [Unknown]
